FAERS Safety Report 5809955-1 (Version None)
Quarter: 2008Q3

REPORT INFORMATION
  Report Type: 
  Country: None (occurrence: None)
  Receive Date: 20080714
  Receipt Date: 20080714
  Transmission Date: 20090109
  Serious: No
  Sender: FDA-Public Use
  Company Number: None

PATIENT
  Age: 70 Year
  Sex: Male
  Weight: 82.5 kg

DRUGS (1)
  1. AVODART [Suspect]
     Indication: BENIGN PROSTATIC HYPERPLASIA
     Dosage: ONE DAILY PO
     Route: 048
     Dates: start: 20070315, end: 20080410

REACTIONS (5)
  - ERECTILE DYSFUNCTION [None]
  - LOSS OF LIBIDO [None]
  - ORGASM ABNORMAL [None]
  - QUALITY OF LIFE DECREASED [None]
  - SEMEN VOLUME DECREASED [None]
